FAERS Safety Report 18516829 (Version 1)
Quarter: 2020Q4

REPORT INFORMATION
  Report Type: Spontaneous
  Country: US (occurrence: US)
  Receive Date: 20201118
  Receipt Date: 20201118
  Transmission Date: 20210114
  Serious: No
  Sender: FDA-Public Use
  Company Number: None

PATIENT
  Age: 74 Year
  Sex: Female

DRUGS (12)
  1. PENETREX CREAM [Concomitant]
  2. PREGABALIN. [Suspect]
     Active Substance: PREGABALIN
     Indication: FIBROMYALGIA
     Route: 048
  3. VITAMIN D3 [Concomitant]
     Active Substance: CHOLECALCIFEROL
  4. CALCIUM [Concomitant]
     Active Substance: CALCIUM
  5. MAGNESIUM [Concomitant]
     Active Substance: MAGNESIUM
  6. HEMPVANA JOINT SUPPORT [Concomitant]
  7. ZINC. [Concomitant]
     Active Substance: ZINC
  8. SAMBUCOL BLACK ALBERY [Concomitant]
  9. ADVIL [Concomitant]
     Active Substance: IBUPROFEN
  10. MANGESIUM MALEATE [Concomitant]
  11. TURMERIC [Concomitant]
     Active Substance: HERBALS\TURMERIC
  12. VITAMIN C [Concomitant]
     Active Substance: ASCORBIC ACID

REACTIONS (1)
  - Burning sensation [None]

NARRATIVE: CASE EVENT DATE: 20201117
